FAERS Safety Report 10157910 (Version 1)
Quarter: 2014Q2

REPORT INFORMATION
  Report Type: Spontaneous
  Country: VE (occurrence: VE)
  Receive Date: 20140507
  Receipt Date: 20140507
  Transmission Date: 20141212
  Serious: Yes (Other)
  Sender: FDA-Public Use
  Company Number: VE-ELI_LILLY_AND_COMPANY-VE201405000780

PATIENT
  Age: 73 Year
  Sex: Male

DRUGS (1)
  1. TADALAFIL [Suspect]
     Indication: PRODUCT USED FOR UNKNOWN INDICATION
     Dosage: 5 MG, PRN
     Route: 048

REACTIONS (1)
  - Diverticulitis intestinal haemorrhagic [Not Recovered/Not Resolved]
